FAERS Safety Report 5948284-2 (Version None)
Quarter: 2008Q4

REPORT INFORMATION
  Report Type: 
  Country: None (occurrence: None)
  Receive Date: 20081111
  Receipt Date: 20081104
  Transmission Date: 20090506
  Serious: Yes (Hospitalization)
  Sender: FDA-Public Use
  Company Number: JP-ELI_LILLY_AND_COMPANY-JP200711000305

PATIENT

DRUGS (3)
  1. HUMALOG [Suspect]
     Dosage: BASAL: 0.8U/HR, BORUS: 12U-10U-12U
     Route: 064
     Dates: start: 20040401
  2. HUMALOG [Suspect]
     Dosage: BASAL 1.0U/HR (0:00-7:00), 0.8U/HR (7:00-0:00), BORUS: 12U-12U-12U
     Route: 064
  3. HUMALOG [Suspect]
     Dosage: BASAL 1.0U/HR (0:00-7:00), 0.5U/HR (7:00-0:00), BORUS: 14U-12U-12U
     Route: 064

REACTIONS (2)
  - DRUG EXPOSURE DURING PREGNANCY [None]
  - NEONATAL ASPHYXIA [None]
